FAERS Safety Report 24620406 (Version 1)
Quarter: 2024Q4

REPORT INFORMATION
  Report Type: Spontaneous
  Country: AT (occurrence: AT)
  Receive Date: 20241114
  Receipt Date: 20241114
  Transmission Date: 20250114
  Serious: Yes (Death, Hospitalization, Other)
  Sender: TEVA
  Company Number: AT-SAKK-2018SA262277AA

PATIENT
  Age: 67 Year
  Sex: Male

DRUGS (11)
  1. PREDNISOLONE [Suspect]
     Active Substance: PREDNISOLONE
     Indication: Acute myeloid leukaemia
     Dosage: DOSAGE TEXT: UNK
     Route: 065
     Dates: start: 1996
  2. PREDNISONE [Suspect]
     Active Substance: PREDNISONE
     Indication: Immunosuppressant drug therapy
     Dosage: DOSAGE TEXT: UNK
     Route: 065
  3. METHYLPREDNISOLONE [Suspect]
     Active Substance: METHYLPREDNISOLONE
     Indication: Kidney transplant rejection
     Dosage: DOSAGE TEXT: UNK
     Route: 040
  4. METHYLPREDNISOLONE [Suspect]
     Active Substance: METHYLPREDNISOLONE
     Indication: Kidney transplant rejection
     Dosage: DOSAGE TEXT: UNK
     Route: 040
     Dates: start: 199001
  5. CYCLOSPORINE [Suspect]
     Active Substance: CYCLOSPORINE
     Indication: Acute myeloid leukaemia
     Dosage: DOSAGE TEXT: UNK
     Route: 065
     Dates: start: 1996
  6. CYCLOSPORINE [Suspect]
     Active Substance: CYCLOSPORINE
     Indication: Acute myeloid leukaemia
     Dosage: DOSAGE TEXT: SWITCHED DURING APLASIA
     Route: 065
  7. AZATHIOPRINE [Suspect]
     Active Substance: AZATHIOPRINE
     Indication: Acute myeloid leukaemia
     Dosage: DOSAGE TEXT: AT DISCHARGE
     Route: 065
     Dates: start: 199603
  8. AZATHIOPRINE [Suspect]
     Active Substance: AZATHIOPRINE
     Indication: Acute myeloid leukaemia
     Dosage: DOSAGE TEXT: IMMUNOSUPPRESIVE THERAPY
     Route: 065
     Dates: start: 1996
  9. LAPINE T-LYMPHOCYTE IMMUNE GLOBULIN [Suspect]
     Active Substance: LAPINE T-LYMPHOCYTE IMMUNE GLOBULIN
     Indication: Kidney transplant rejection
     Dosage: DOSAGE TEXT: UNK
     Route: 040
  10. PIPERACILLIN SODIUM\TAZOBACTAM SODIUM [Concomitant]
     Active Substance: PIPERACILLIN SODIUM\TAZOBACTAM SODIUM
     Indication: Pyrexia
     Dosage: DOSAGE TEXT: UNK
     Route: 065
  11. GRANULOCYTE COLONY-STIMULATING FACTOR NOS [Concomitant]
     Active Substance: GRANULOCYTE COLONY-STIMULATING FACTOR NOS
     Indication: Pyrexia
     Dosage: DOSAGE TEXT: 300 UG, QD
     Route: 065

REACTIONS (4)
  - Thrombocytopenia [Fatal]
  - Acute myeloid leukaemia [Fatal]
  - Leukopenia [Fatal]
  - Congenital aplasia [Fatal]

NARRATIVE: CASE EVENT DATE: 19960601
